FAERS Safety Report 5910041-0 (Version None)
Quarter: 2008Q4

REPORT INFORMATION
  Report Type: 
  Country: None (occurrence: None)
  Receive Date: 20081007
  Receipt Date: 20070814
  Transmission Date: 20090506
  Serious: Yes (Other)
  Sender: FDA-Public Use
  Company Number: US-ASTRAZENECA-2007UW19585

PATIENT
  Age: 78 Year
  Sex: Female
  Weight: 72.1 kg

DRUGS (13)
  1. ARIMIDEX [Suspect]
     Indication: BREAST CANCER
     Route: 048
     Dates: start: 20061101
  2. ASCORBIC ACID [Concomitant]
  3. VITAMIN D [Concomitant]
  4. CALCIUM [Concomitant]
  5. MULTI-VITAMIN [Concomitant]
  6. AMBIEN [Concomitant]
  7. NEXIUM [Concomitant]
     Route: 048
  8. VYTORIN [Concomitant]
  9. DIOVAN [Concomitant]
  10. PLAVIX [Concomitant]
  11. ASPIRIN [Concomitant]
  12. TOPROL-XL [Concomitant]
     Route: 048
  13. NITROGLYCERIN [Concomitant]
     Indication: CHEST PAIN

REACTIONS (2)
  - ABDOMINAL PAIN [None]
  - CHEST PAIN [None]
